FAERS Safety Report 8342664-6 (Version None)
Quarter: 2012Q2

REPORT INFORMATION
  Report Type: 
  Country: None (occurrence: None)
  Receive Date: 20120508
  Receipt Date: 20120427
  Transmission Date: 20120825
  Serious: No
  Sender: FDA-Public Use
  Company Number: US-BIOGENIDEC-2012BI014716

PATIENT
  Sex: Male

DRUGS (3)
  1. AVONEX [Suspect]
     Indication: MULTIPLE SCLEROSIS
     Route: 030
     Dates: start: 20010918, end: 20030301
  2. AVONEX [Suspect]
     Route: 030
     Dates: start: 20051213
  3. AVONEX [Suspect]
     Route: 030
     Dates: start: 20070315, end: 20100427

REACTIONS (1)
  - PARALYSIS [None]
